FAERS Safety Report 18135120 (Version 1)
Quarter: 2020Q3

REPORT INFORMATION
  Report Type: Spontaneous
  Country: US (occurrence: US)
  Receive Date: 20200811
  Receipt Date: 20200811
  Transmission Date: 20201103
  Serious: Yes (Hospitalization)
  Sender: FDA-Public Use
  Company Number: None

PATIENT
  Age: 64 Year
  Sex: Male
  Weight: 86.4 kg

DRUGS (6)
  1. ATORVASTATIN 20 MG [Concomitant]
     Active Substance: ATORVASTATIN
  2. ASPIRIN 81 [Concomitant]
     Active Substance: ASPIRIN
  3. DOC.CALCIUM [Concomitant]
  4. GLYBURIDE?METFORMIN (GLUCOVANCE) 5?500 [Concomitant]
  5. CANAGLIFLOZIN [Suspect]
     Active Substance: CANAGLIFLOZIN
  6. HCTZ? 25 MG [Concomitant]

REACTIONS (1)
  - Pancreatitis [None]

NARRATIVE: CASE EVENT DATE: 20200722
